FAERS Safety Report 8869278 (Version 1)
Quarter: 2012Q4

REPORT INFORMATION
  Report Type: Spontaneous
  Country: US (occurrence: None)
  Receive Date: 20121025
  Receipt Date: 20121025
  Transmission Date: 20130627
  Serious: Yes (Other)
  Sender: FDA-Public Use
  Company Number: None

PATIENT
  Age: 41 Year
  Sex: Female
  Weight: 63.5 kg

DRUGS (1)
  1. CLARAVIS [Suspect]
     Dosage: 30mg twice daily po
     Route: 048
     Dates: start: 20120824, end: 20121018

REACTIONS (3)
  - Depression [None]
  - Suicidal ideation [None]
  - Impaired work ability [None]
